FAERS Safety Report 9469476 (Version 1)
Quarter: 2013Q3

REPORT INFORMATION
  Report Type: Spontaneous
  Country: US (occurrence: US)
  Receive Date: 20130822
  Receipt Date: 20130822
  Transmission Date: 20140515
  Serious: No
  Sender: FDA-Public Use
  Company Number: US-009507513-1308USA009131

PATIENT
  Sex: 0

DRUGS (1)
  1. INVANZ [Suspect]
     Dosage: 1 G, UNK

REACTIONS (1)
  - Hallucination [Unknown]
